FAERS Safety Report 24173669 (Version 1)
Quarter: 2024Q3

REPORT INFORMATION
  Report Type: Report from Study
  Country: NL (occurrence: NL)
  Receive Date: 20240805
  Receipt Date: 20240805
  Transmission Date: 20241016
  Serious: Yes (Other)
  Sender: PERRIGO
  Company Number: NL-UNITED THERAPEUTICS-UNT-2024-015698

PATIENT
  Age: 52 Year
  Sex: Female

DRUGS (5)
  1. ACETAMINOPHEN [Suspect]
     Active Substance: ACETAMINOPHEN
     Indication: Infusion site pain
     Dosage: UNK
     Route: 065
     Dates: start: 20240522
  2. TREPROSTINIL SODIUM [Suspect]
     Active Substance: TREPROSTINIL SODIUM
     Indication: Pulmonary arterial hypertension
     Dosage: UNK, CONTINUING
     Route: 058
     Dates: start: 20240102
  3. TREPROSTINIL SODIUM [Suspect]
     Active Substance: TREPROSTINIL SODIUM
     Dosage: UNK
     Route: 058
     Dates: start: 2024
  4. TRAMADOL [Suspect]
     Active Substance: TRAMADOL\TRAMADOL HYDROCHLORIDE
     Indication: Infusion site pain
     Dosage: UNK
     Route: 065
     Dates: start: 20240522
  5. REMODULIN [Suspect]
     Active Substance: TREPROSTINIL
     Indication: Pulmonary arterial hypertension
     Dosage: UNK
     Route: 042
     Dates: start: 202201, end: 20240102

REACTIONS (9)
  - Infusion site erythema [Recovered/Resolved]
  - Therapeutic response decreased [Unknown]
  - Infusion site pain [Recovering/Resolving]
  - Skin irritation [Recovering/Resolving]
  - Infusion site induration [Recovering/Resolving]
  - Rash erythematous [Recovering/Resolving]
  - Exomphalos [Recovering/Resolving]
  - Injection site inflammation [Recovered/Resolved]
  - Phlebitis [Unknown]

NARRATIVE: CASE EVENT DATE: 20240522
